FAERS Safety Report 20398602 (Version 2)
Quarter: 2022Q1

REPORT INFORMATION
  Report Type: Spontaneous
  Country: US (occurrence: US)
  Receive Date: 20220131
  Receipt Date: 20220201
  Transmission Date: 20220423
  Serious: Yes (Other)
  Sender: FDA-Public Use
  Company Number: US-ABBVIE-21K-163-3749311-00

PATIENT
  Age: 67 Year
  Sex: Female
  Weight: 96.248 kg

DRUGS (10)
  1. HUMIRA [Suspect]
     Active Substance: ADALIMUMAB
     Indication: Eye disorder
     Route: 058
     Dates: start: 202012, end: 202101
  2. OPSUMIT [Concomitant]
     Active Substance: MACITENTAN
     Indication: Lung disorder
  3. OPSUMIT [Concomitant]
     Active Substance: MACITENTAN
     Indication: Cardiac disorder
  4. TADALAFIL [Concomitant]
     Active Substance: TADALAFIL
     Indication: Lung disorder
  5. TADALAFIL [Concomitant]
     Active Substance: TADALAFIL
     Indication: Cardiac disorder
  6. METHOTREXATE [Concomitant]
     Active Substance: METHOTREXATE
     Indication: Eye disorder
  7. ALLOPURINOL [Concomitant]
     Active Substance: ALLOPURINOL
     Indication: Product used for unknown indication
  8. FOLIC ACID [Concomitant]
     Active Substance: FOLIC ACID
     Indication: Eye disorder
  9. TORSEMIDE [Concomitant]
     Active Substance: TORSEMIDE
     Indication: Diuretic therapy
  10. METFORMIN [Concomitant]
     Active Substance: METFORMIN HYDROCHLORIDE
     Indication: Product used for unknown indication

REACTIONS (4)
  - COVID-19 [Recovering/Resolving]
  - Pneumonia [Not Recovered/Not Resolved]
  - Urinary tract infection [Not Recovered/Not Resolved]
  - Pain [Recovering/Resolving]

NARRATIVE: CASE EVENT DATE: 20210101
